FAERS Safety Report 9492450 (Version 6)
Quarter: 2014Q2

REPORT INFORMATION
  Report Type: Report from Study
  Country: IL (occurrence: IL)
  Receive Date: 20130830
  Receipt Date: 20140605
  Transmission Date: 20141212
  Serious: Yes (Hospitalization)
  Sender: FDA-Public Use
  Company Number: IL-BAYER-2013-034016

PATIENT
  Age: 58 Year
  Sex: Male
  Weight: 87.5 kg

DRUGS (31)
  1. REGORAFENIB [Suspect]
     Indication: COLORECTAL CANCER
     Dosage: STUDY MED NOT GIVEN
  2. REGORAFENIB [Suspect]
     Indication: COLORECTAL CANCER
     Dosage: CYCLE 1, 40MG X 4 = 160MG DAILY
     Route: 048
     Dates: start: 20130318, end: 20130407
  3. REGORAFENIB [Suspect]
     Indication: COLORECTAL CANCER
     Dosage: CYCLE 2, 40 MG X 4=160MG DAILY
     Route: 048
     Dates: start: 20130415, end: 20130505
  4. REGORAFENIB [Suspect]
     Indication: COLORECTAL CANCER
     Dosage: CYCLE 3, 40 MG X 4 = 160 MG DAILY
     Dates: start: 20130513, end: 20130529
  5. REGORAFENIB [Suspect]
     Indication: COLORECTAL CANCER
     Dosage: 120 MG DAILY
     Dates: start: 20130610, end: 20130630
  6. REGORAFENIB [Suspect]
     Indication: COLORECTAL CANCER
     Dosage: 120 MG DAILY
     Dates: start: 20130709, end: 20130724
  7. REGORAFENIB [Suspect]
     Indication: COLORECTAL CANCER
     Dosage: 120 MG DAILY
     Dates: start: 20130805, end: 20130824
  8. REGORAFENIB [Suspect]
     Indication: COLORECTAL CANCER
     Dosage: 120 MG DAILY
     Dates: start: 20130902, end: 20130917
  9. REGORAFENIB [Suspect]
     Indication: COLORECTAL CANCER
     Dosage: 120 MG DAILY
     Dates: start: 20131001, end: 20131016
  10. REGORAFENIB [Suspect]
     Indication: COLORECTAL CANCER
     Dosage: 120 MG DAILY
     Dates: start: 20131028, end: 20131117
  11. REGORAFENIB [Suspect]
     Indication: COLORECTAL CANCER
     Dosage: 120 MG DAILY
     Dates: start: 20131128, end: 20131218
  12. REGORAFENIB [Suspect]
     Indication: COLORECTAL CANCER
     Dosage: 120 MG DAILY
     Dates: start: 20131224, end: 20140120
  13. REGORAFENIB [Suspect]
     Indication: COLORECTAL CANCER
     Dosage: 120 MG DAILY
     Dates: start: 20140121, end: 20140210
  14. REGORAFENIB [Suspect]
     Indication: COLORECTAL CANCER
     Dosage: 120 MG DAILY
     Dates: start: 20140217, end: 20140309
  15. REGORAFENIB [Suspect]
     Indication: COLORECTAL CANCER
     Dosage: 120 MG DAILY
     Dates: start: 20140318, end: 20140407
  16. TARGIN [Concomitant]
     Indication: PAIN IN EXTREMITY
     Dosage: 40 MG, BID
     Route: 048
     Dates: start: 201302, end: 201305
  17. OXYCOD [Concomitant]
     Indication: PAIN IN EXTREMITY
     Dosage: 5 CC, PRN
     Route: 048
     Dates: start: 201302, end: 20131120
  18. LYRICA [Concomitant]
     Indication: PAIN IN EXTREMITY
     Dosage: 75 MG, BID
     Route: 048
     Dates: start: 201302, end: 20131119
  19. OXYCONTIN [Concomitant]
     Indication: PAIN IN EXTREMITY
     Dosage: 20 MG, BID
     Route: 048
     Dates: start: 201302, end: 201304
  20. OXYCONTIN [Concomitant]
     Indication: PAIN IN EXTREMITY
     Dosage: 50 MG, BID
     Route: 048
     Dates: start: 201304, end: 20130813
  21. OXYCONTIN [Concomitant]
     Indication: PAIN IN EXTREMITY
     Dosage: 80 MG, BID
     Route: 048
     Dates: start: 20130814
  22. NORMITEN [Concomitant]
     Indication: HYPERTENSION
     Dosage: 25 MG, QD
     Route: 048
     Dates: start: 1998, end: 20130802
  23. VASODIP [Concomitant]
     Indication: HYPERTENSION
     Dosage: 10 MG, BID
     Route: 048
     Dates: start: 1998, end: 20130802
  24. DIOVAN [Concomitant]
     Indication: HYPERTENSION
     Dosage: 80 MG, QD
     Route: 048
     Dates: start: 1998
  25. LERCANIDIPINE HYDROCHLORIDE [Concomitant]
     Indication: HYPERTENSION
     Dosage: 10 MG, QD
     Route: 048
     Dates: start: 1998, end: 20130802
  26. OMEPRADEX [Concomitant]
     Indication: DYSPEPSIA
     Dosage: 20 MG, QD
     Route: 048
     Dates: start: 1998
  27. PACKED RED BLOOD CELLS [Concomitant]
     Indication: ANAEMIA
     Dosage: 1 UNIT QD
     Dates: start: 20130315, end: 20130315
  28. DEXAMETHASONE [Concomitant]
     Indication: ALLERGIC TRANSFUSION REACTION
     Dosage: UNK
     Route: 042
     Dates: start: 20130315, end: 20130315
  29. FENERGAN [Concomitant]
     Indication: ALLERGIC TRANSFUSION REACTION
     Dosage: UNK
     Route: 048
     Dates: start: 20130315, end: 20130315
  30. NACL [Concomitant]
     Indication: HYPONATRAEMIA
     Dosage: 1 LITER, QD
     Route: 042
     Dates: start: 20130403, end: 20130403
  31. PRAMIN [Concomitant]
     Indication: NAUSEA
     Dosage: 10 MG, PRN
     Route: 048
     Dates: start: 20130327

REACTIONS (4)
  - Urosepsis [Recovered/Resolved]
  - Pyrexia [Recovered/Resolved]
  - Pancreatitis [Recovered/Resolved]
  - Urinary tract infection [Recovered/Resolved]
